FAERS Safety Report 10036106 (Version 1)
Quarter: 2014Q1

REPORT INFORMATION
  Report Type: Spontaneous
  Country: BR (occurrence: BR)
  Receive Date: 20140325
  Receipt Date: 20140325
  Transmission Date: 20141002
  Serious: Yes (Hospitalization, Other)
  Sender: FDA-Public Use
  Company Number: BR-MERCK-1403BRA009226

PATIENT
  Age: 22 Year
  Sex: Female
  Weight: 53 kg

DRUGS (2)
  1. MERCILON CONTI [Suspect]
     Indication: CONTRACEPTION
     Dosage: 1 DF, QD
     Route: 048
     Dates: end: 2006
  2. MERCILON CONTI [Suspect]
     Dosage: 1 DF, QD
     Route: 048
     Dates: start: 201402

REACTIONS (7)
  - Caesarean section [Recovered/Resolved]
  - Organ donor [Recovered/Resolved]
  - Blood pressure decreased [Recovered/Resolved]
  - Uterine contractions during pregnancy [Recovered/Resolved]
  - Premature delivery [Recovered/Resolved]
  - Maternal exposure before pregnancy [Unknown]
  - Drug administration error [Unknown]
